FAERS Safety Report 25528804 (Version 1)
Quarter: 2025Q3

REPORT INFORMATION
  Report Type: Report from Study
  Country: CA (occurrence: CA)
  Receive Date: 20250708
  Receipt Date: 20250708
  Transmission Date: 20251021
  Serious: Yes (Other)
  Sender: CSL BEHRING
  Company Number: CA-BEH-2025200562

PATIENT
  Age: 90 Year
  Sex: Male
  Weight: 61.7 kg

DRUGS (2)
  1. HIZENTRA [Suspect]
     Active Substance: HUMAN IMMUNOGLOBULIN G
     Indication: Necrotising myositis
     Dosage: 10 G, BIW
     Route: 058
     Dates: start: 20250325
  2. INSULIN NOS [Concomitant]
     Active Substance: INSULIN NOS

REACTIONS (4)
  - Haemoglobin decreased [Unknown]
  - Infusion site erythema [Unknown]
  - Infusion site swelling [Unknown]
  - Off label use [Unknown]

NARRATIVE: CASE EVENT DATE: 20250325
